FAERS Safety Report 16341214 (Version 1)
Quarter: 2019Q2

REPORT INFORMATION
  Report Type: Spontaneous
  Country: US (occurrence: US)
  Receive Date: 20190416
  Receipt Date: 20190416
  Transmission Date: 20190711
  Serious: Yes (Disabling, Other)
  Sender: FDA-Public Use
  Company Number: None

PATIENT
  Age: 23 Year
  Sex: Female
  Weight: 76.2 kg

DRUGS (5)
  1. PRENATAL [Concomitant]
     Active Substance: VITAMINS
  2. FISH OIL [Concomitant]
     Active Substance: FISH OIL
  3. AMOXICILLIN 500MG [Suspect]
     Active Substance: AMOXICILLIN
     Indication: EAR INFECTION
     Dosage: ?          QUANTITY:1 DF DOSAGE FORM;?
     Route: 048
     Dates: start: 20180719, end: 20180805
  4. ONE-A-DAY MULTIVITAMIN [Concomitant]
  5. PROBIOTICS [Concomitant]
     Active Substance: PROBIOTICS NOS

REACTIONS (10)
  - Palpitations [None]
  - Abdominal pain upper [None]
  - Confusional state [None]
  - Feeling abnormal [None]
  - Hypovitaminosis [None]
  - Tension headache [None]
  - Gastrointestinal disorder [None]
  - Anxiety [None]
  - Irritability [None]
  - Nausea [None]

NARRATIVE: CASE EVENT DATE: 201809
